FAERS Safety Report 5808488-6 (Version None)
Quarter: 2008Q3

REPORT INFORMATION
  Report Type: 
  Country: None (occurrence: None)
  Receive Date: 20080714
  Receipt Date: 20080701
  Transmission Date: 20090109
  Serious: Yes (Hospitalization)
  Sender: FDA-Public Use
  Company Number: JP-NOVOPROD-276574

PATIENT
  Age: 60 Year
  Sex: Female

DRUGS (6)
  1. NOVOLIN N [Suspect]
     Indication: TYPE 2 DIABETES MELLITUS
  2. LEVEMIR [Suspect]
     Indication: TYPE 2 DIABETES MELLITUS
     Route: 058
  3. NOVORAPID CHU PENFILL [Suspect]
     Indication: TYPE 2 DIABETES MELLITUS
     Route: 058
  4. VOGLIBOSE [Concomitant]
  5. METFORMIN [Concomitant]
     Indication: TYPE 2 DIABETES MELLITUS
  6. ASPIRIN [Concomitant]

REACTIONS (1)
  - AUTOIMMUNE HEPATITIS [None]
